FAERS Safety Report 9529918 (Version 1)
Quarter: 2013Q1

REPORT INFORMATION
  Report Type: Spontaneous
  Country: US (occurrence: None)
  Receive Date: 20130329
  Receipt Date: 20130329
  Transmission Date: 20140127
  Serious: Yes (Other)
  Sender: FDA-Public Use
  Company Number: 1000042831

PATIENT
  Age: 72 Year
  Sex: Female

DRUGS (4)
  1. LINZESS [Suspect]
     Indication: GASTROINTESTINAL DISORDER
     Route: 048
     Dates: start: 201302, end: 201302
  2. LINZESS [Suspect]
     Indication: PARALYSIS
     Route: 048
     Dates: start: 201302, end: 201302
  3. LINZESS [Suspect]
     Indication: GASTROINTESTINAL DISORDER
     Route: 048
     Dates: start: 20130215, end: 20130215
  4. LINZESS [Suspect]
     Indication: PARALYSIS
     Route: 048
     Dates: start: 20130215, end: 20130215

REACTIONS (4)
  - Diarrhoea [None]
  - Flatulence [None]
  - Abdominal pain [None]
  - Off label use [None]
